FAERS Safety Report 5514903-8 (Version None)
Quarter: 2007Q4

REPORT INFORMATION
  Report Type: 
  Country: None (occurrence: None)
  Receive Date: 20071113
  Receipt Date: 20060927
  Transmission Date: 20080405
  Serious: No
  Sender: FDA-Public Use
  Company Number: A0621694A

PATIENT
  Age: 55 Year
  Sex: Female

DRUGS (5)
  1. COREG [Suspect]
     Indication: CARDIOMYOPATHY
     Dosage: 3.125VA TWICE PER DAY
     Route: 048
     Dates: start: 20051101
  2. SYNTHROID [Concomitant]
  3. ZESTRIL [Concomitant]
  4. ALDACTONE [Concomitant]
  5. VITAMIN CAP [Concomitant]

REACTIONS (4)
  - ARTHRALGIA [None]
  - DEPRESSION [None]
  - FATIGUE [None]
  - HOT FLUSH [None]
